FAERS Safety Report 26129560 (Version 2)
Quarter: 2025Q4

REPORT INFORMATION
  Report Type: Report from Study
  Country: US (occurrence: US)
  Receive Date: 20251208
  Receipt Date: 20251217
  Transmission Date: 20260118
  Serious: Yes (Hospitalization)
  Sender: BIOCODEX
  Company Number: US-BIOCODEX2-2025001776

PATIENT
  Age: 19 Year
  Sex: Male
  Weight: 73.5 kg

DRUGS (12)
  1. DIACOMIT [Suspect]
     Active Substance: STIRIPENTOL
     Indication: Lennox-Gastaut syndrome
  2. DIACOMIT [Suspect]
     Active Substance: STIRIPENTOL
  3. DIACOMIT [Suspect]
     Active Substance: STIRIPENTOL
     Dosage: TAKE 500 MG VIA G-TUBE TWICE DAILY
     Dates: start: 20251111
  4. DIACOMIT [Suspect]
     Active Substance: STIRIPENTOL
  5. DIACOMIT [Suspect]
     Active Substance: STIRIPENTOL
  6. DIACOMIT [Suspect]
     Active Substance: STIRIPENTOL
  7. CLOBAZAM [Concomitant]
     Active Substance: CLOBAZAM
     Indication: Product used for unknown indication
  8. CLOBAZAM [Concomitant]
     Active Substance: CLOBAZAM
  9. FINTEPLA [Concomitant]
     Active Substance: FENFLURAMINE
     Indication: Product used for unknown indication
  10. FINTEPLA [Concomitant]
     Active Substance: FENFLURAMINE
  11. DEPAKOTE [Concomitant]
     Active Substance: DIVALPROEX SODIUM
     Indication: Product used for unknown indication
  12. DEPAKOTE [Concomitant]
     Active Substance: DIVALPROEX SODIUM

REACTIONS (7)
  - Off label use [Unknown]
  - Off label use [Unknown]
  - Vomiting [Unknown]
  - Adverse drug reaction [Unknown]
  - Somnolence [Unknown]
  - Asthenia [Unknown]
  - Decreased appetite [Unknown]

NARRATIVE: CASE EVENT DATE: 20251111
